FAERS Safety Report 7933897-9 (Version None)
Quarter: 2011Q4

REPORT INFORMATION
  Report Type: 
  Country: None (occurrence: None)
  Receive Date: 20111122
  Receipt Date: 20111115
  Transmission Date: 20120403
  Serious: Yes (Hospitalization)
  Sender: FDA-Public Use
  Company Number: US-US-EMD SERONO, INC.-7096370

PATIENT
  Sex: Female
  Weight: 70 kg

DRUGS (4)
  1. DILTIAZEM HCL [Concomitant]
     Indication: RAYNAUD'S PHENOMENON
  2. REBIF [Suspect]
     Indication: MULTIPLE SCLEROSIS
     Route: 058
     Dates: start: 20090820
  3. MULTI-VITAMIN [Concomitant]
     Indication: SUPPLEMENTATION THERAPY
  4. WELLBUTRIN XL [Concomitant]
     Indication: DEPRESSION

REACTIONS (4)
  - FEBRILE INFECTION [None]
  - VOMITING [None]
  - MULTIPLE SCLEROSIS RELAPSE [None]
  - URINARY TRACT INFECTION [None]
